FAERS Safety Report 25249347 (Version 1)
Quarter: 2025Q2

REPORT INFORMATION
  Report Type: Spontaneous
  Country: IT (occurrence: IT)
  Receive Date: 20250429
  Receipt Date: 20250429
  Transmission Date: 20250717
  Serious: Yes (Other)
  Sender: BRISTOL-MYERS SQUIBB COMPANY
  Company Number: IT-CELGENE-ITA-20170703754

PATIENT
  Age: 64 Year
  Sex: Female

DRUGS (3)
  1. THALIDOMIDE [Suspect]
     Active Substance: THALIDOMIDE
     Indication: Plasmacytoma
     Route: 048
     Dates: start: 2007, end: 2007
  2. DEXAMETHASONE [Suspect]
     Active Substance: DEXAMETHASONE
     Indication: Plasmacytoma
     Route: 048
     Dates: start: 2007, end: 2007
  3. DEXAMETHASONE [Suspect]
     Active Substance: DEXAMETHASONE
     Route: 048
     Dates: start: 2008

REACTIONS (1)
  - Antiphospholipid syndrome [Unknown]

NARRATIVE: CASE EVENT DATE: 20070101
